FAERS Safety Report 6013350-2 (Version None)
Quarter: 2008Q4

REPORT INFORMATION
  Report Type: 
  Country: None (occurrence: None)
  Receive Date: 20081218
  Receipt Date: 20081218
  Transmission Date: 20090506
  Serious: Yes (Life-Threatening, Hospitalization)
  Sender: FDA-Public Use
  Company Number: None

PATIENT
  Sex: Female
  Weight: 57 kg

DRUGS (2)
  1. HEPARIN [Suspect]
     Indication: ANTICOAGULANT THERAPY
     Dosage: 1000 UNITS Q40MIN X 2 DOSES IVPUSH
     Route: 042
     Dates: end: 20081130
  2. ISOVUE-370 [Suspect]
     Dosage: 200ML XL IV
     Route: 042
     Dates: end: 20081130

REACTIONS (3)
  - DYSPNOEA [None]
  - OXYGEN SATURATION DECREASED [None]
  - UNRESPONSIVE TO STIMULI [None]
